FAERS Safety Report 21365407 (Version 2)
Quarter: 2023Q1

REPORT INFORMATION
  Report Type: Spontaneous
  Country: US (occurrence: US)
  Receive Date: 20220922
  Receipt Date: 20230203
  Transmission Date: 20230417
  Serious: No
  Sender: FDA-Public Use
  Company Number: US-PFIZER INC-202201177382

PATIENT
  Age: 62 Year
  Sex: Female

DRUGS (1)
  1. IBRANCE [Suspect]
     Active Substance: PALBOCICLIB
     Dosage: 125 MG, CYCLIC (DAILY FOR 21 DAYS THEN 7 DAYS OFF)
     Dates: start: 20220909

REACTIONS (4)
  - Nausea [Unknown]
  - Diarrhoea [Unknown]
  - Respiratory tract infection viral [Unknown]
  - Sinusitis [Unknown]

NARRATIVE: CASE EVENT DATE: 20220916
